FAERS Safety Report 5653152-X (Version None)
Quarter: 2008Q1

REPORT INFORMATION
  Report Type: 
  Country: None (occurrence: None)
  Receive Date: 20080306
  Receipt Date: 20080225
  Transmission Date: 20080703
  Serious: Yes (Other)
  Sender: FDA-Public Use
  Company Number: TW-SANOFI-SYNTHELABO-A01200802150

PATIENT
  Age: 17 Year
  Sex: Female

DRUGS (8)
  1. LITHIUM CARBONATE [Suspect]
     Indication: DRUG USE FOR UNKNOWN INDICATION
     Route: 065
  2. LITHIUM CARBONATE [Suspect]
     Dosage: DOSE REDUCED
     Route: 065
  3. ZOLPIDEM [Suspect]
     Indication: DRUG USE FOR UNKNOWN INDICATION
     Route: 065
  4. ZOLPIDEM [Suspect]
     Dosage: DOSE GRADUALLY TAPERED
     Route: 065
  5. AMISULPRIDE [Suspect]
     Indication: DRUG USE FOR UNKNOWN INDICATION
     Route: 065
  6. AMISULPRIDE [Suspect]
     Dosage: DOSE GRADUALLY TAPERED
     Route: 065
  7. CLONAZEPAM [Suspect]
     Indication: DRUG USE FOR UNKNOWN INDICATION
     Route: 065
  8. CLONAZEPAM [Suspect]
     Dosage: DOSE GRADUALLY TAPERED
     Route: 065

REACTIONS (1)
  - WEIGHT INCREASED [None]
